FAERS Safety Report 5389177-1 (Version None)
Quarter: 2007Q3

REPORT INFORMATION
  Report Type: 
  Country: None (occurrence: None)
  Receive Date: 20070717
  Receipt Date: 20070711
  Transmission Date: 20080115
  Serious: Yes (Hospitalization, Other)
  Sender: FDA-Public Use
  Company Number: JP-AVENTIS-200711481JP

PATIENT
  Age: 71 Year
  Sex: Female
  Weight: 56 kg

DRUGS (8)
  1. TAXOTERE [Suspect]
     Indication: NON-SMALL CELL LUNG CANCER
     Route: 041
     Dates: start: 20070521, end: 20070527
  2. TS-1 [Suspect]
     Indication: NON-SMALL CELL LUNG CANCER
     Route: 048
     Dates: start: 20070521, end: 20070527
  3. CONIEL [Concomitant]
     Indication: HYPERTENSION
     Dosage: DOSE: 1 TABLET
     Route: 048
  4. OLMETEC [Concomitant]
     Indication: HYPERTENSION
     Dosage: DOSE: 1 TABLET
     Route: 048
  5. KALLIKREIN [Concomitant]
     Indication: HYPERTENSION
     Dosage: DOSE: 3 TABLETS
     Route: 048
  6. GASTER D [Concomitant]
     Dosage: DOSE: 2 TABLETS
     Route: 048
  7. DECADRON [Concomitant]
     Indication: PREMEDICATION
     Dates: start: 20070521, end: 20070527
  8. RESTAMIN [Concomitant]
     Indication: PREMEDICATION
     Dates: start: 20070521, end: 20070527

REACTIONS (7)
  - ANOREXIA [None]
  - MALAISE [None]
  - NEUTROPHIL COUNT DECREASED [None]
  - PYREXIA [None]
  - RHABDOMYOLYSIS [None]
  - STOMATITIS [None]
  - WHITE BLOOD CELL COUNT DECREASED [None]
